APPROVED DRUG PRODUCT: DISULFIRAM
Active Ingredient: DISULFIRAM
Strength: 500MG
Dosage Form/Route: TABLET;ORAL
Application: A203916 | Product #002
Applicant: DASH PHARMACEUTICALS LLC
Approved: Mar 4, 2015 | RLD: No | RS: No | Type: DISCN